FAERS Safety Report 9310949 (Version 1)
Quarter: 2013Q2

REPORT INFORMATION
  Report Type: Spontaneous
  Country: US (occurrence: None)
  Receive Date: 20130523
  Receipt Date: 20130523
  Transmission Date: 20140414
  Serious: No
  Sender: FDA-Public Use
  Company Number: None

PATIENT
  Age: 73 Year
  Sex: Male

DRUGS (1)
  1. XTANDI 40MG [Suspect]
     Dosage: 80MG BID PO
     Route: 048

REACTIONS (2)
  - Fatigue [None]
  - Oedema peripheral [None]
